FAERS Safety Report 5039675-5 (Version None)
Quarter: 2006Q2

REPORT INFORMATION
  Report Type: 
  Country: None (occurrence: None)
  Receive Date: 20060601
  Receipt Date: 20060118
  Transmission Date: 20061013
  Serious: No
  Sender: FDA-Public Use
  Company Number: 2006PV007294

PATIENT
  Age: 73 Year
  Sex: Male
  Weight: 92.9874 kg

DRUGS (10)
  1. BYETTA [Suspect]
     Indication: DIABETES MELLITUS NON-INSULIN-DEPENDENT
     Dosage: SEE IMAGE
     Route: 058
     Dates: start: 20051205, end: 20060103
  2. BYETTA [Suspect]
     Indication: DIABETES MELLITUS NON-INSULIN-DEPENDENT
     Dosage: SEE IMAGE
     Route: 058
     Dates: start: 20060104
  3. LANTUS [Concomitant]
  4. GLUCOTROL [Concomitant]
  5. IBUPROFEN [Concomitant]
  6. VASOTEC [Concomitant]
  7. LASIX [Concomitant]
  8. CARDIZEM CD [Concomitant]
  9. CLONIDINE [Concomitant]
  10. PRAVACHOL [Concomitant]

REACTIONS (4)
  - ARTHRALGIA [None]
  - ARTHRITIS [None]
  - DECREASED APPETITE [None]
  - WEIGHT DECREASED [None]
